FAERS Safety Report 9756700 (Version 1)
Quarter: 2013Q4

REPORT INFORMATION
  Report Type: Report from Study
  Country: IT (occurrence: DE)
  Receive Date: 20131213
  Receipt Date: 20131213
  Transmission Date: 20140711
  Serious: Yes (Hospitalization)
  Sender: FDA-Public Use
  Company Number: IT-ELI_LILLY_AND_COMPANY-DE201312002036

PATIENT
  Age: 61 Year
  Sex: Female
  Weight: 92 kg

DRUGS (7)
  1. GEMCITABINE HYDROCHLORIDE [Suspect]
     Indication: NON-SMALL CELL LUNG CANCER
     Dosage: 1200 MG/M2, UNK
     Dates: start: 20130913, end: 20131115
  2. CISPLATIN [Suspect]
     Indication: NON-SMALL CELL LUNG CANCER
     Dosage: 75 MG/M2, UNK
     Dates: start: 20130913, end: 20131115
  3. KEVATRIL [Concomitant]
     Route: 042
  4. MCP [Concomitant]
     Indication: NAUSEA
     Dosage: 90 MG, UNK
  5. PANTOPRAZOLE [Concomitant]
     Indication: PROPHYLAXIS
     Dosage: UNK
     Dates: start: 20130913
  6. ACETYLSALICYLIC ACID W/CODEINE [Concomitant]
     Indication: PROPHYLAXIS
     Dosage: UNK
  7. TIOTROPIUM BROMIDE [Concomitant]
     Indication: CHRONIC OBSTRUCTIVE PULMONARY DISEASE
     Dosage: UNK

REACTIONS (1)
  - Infection [Recovered/Resolved]
